FAERS Safety Report 6912719-9 (Version None)
Quarter: 2010Q3

REPORT INFORMATION
  Report Type: 
  Country: None (occurrence: None)
  Receive Date: 20100806
  Receipt Date: 20081016
  Transmission Date: 20110219
  Serious: No
  Sender: FDA-Public Use
  Company Number: US-PFIZER INC-2008087529

PATIENT
  Sex: Female
  Weight: 96.16 kg

DRUGS (5)
  1. GLIPIZIDE [Suspect]
     Indication: DIABETES MELLITUS
     Dates: start: 20080929, end: 20081001
  2. COREG [Concomitant]
  3. GLUCOPHAGE [Concomitant]
  4. LISINOPRIL [Concomitant]
  5. RESTORIL [Concomitant]

REACTIONS (1)
  - FEELING ABNORMAL [None]
